FAERS Safety Report 14282803 (Version 2)
Quarter: 2018Q1

REPORT INFORMATION
  Report Type: Spontaneous
  Country: JP (occurrence: JP)
  Receive Date: 20171213
  Receipt Date: 20180124
  Transmission Date: 20180508
  Serious: Yes (Hospitalization)
  Sender: FDA-Public Use
  Company Number: JP-ELI_LILLY_AND_COMPANY-JP201712001390

PATIENT
  Age: 79 Year
  Sex: Male

DRUGS (10)
  1. ZALUTIA [Suspect]
     Active Substance: TADALAFIL
     Indication: PRODUCT USED FOR UNKNOWN INDICATION
     Dosage: UNK
     Route: 048
     Dates: start: 201703
  2. MIGLITOL. [Concomitant]
     Active Substance: MIGLITOL
  3. SIMVASTATIN. [Concomitant]
     Active Substance: SIMVASTATIN
  4. AVOLVE [Concomitant]
     Active Substance: DUTASTERIDE
  5. MAGMITT [Concomitant]
     Active Substance: MAGNESIUM OXIDE
  6. METGLUCO [Concomitant]
     Active Substance: METFORMIN HYDROCHLORIDE
  7. CARBOCISTEINE [Concomitant]
     Active Substance: CARBOCYSTEINE
  8. BAYASPIRIN [Concomitant]
     Active Substance: ASPIRIN
  9. GLIMEPIRIDE. [Concomitant]
     Active Substance: GLIMEPIRIDE
  10. JANUVIA [Concomitant]
     Active Substance: SITAGLIPTIN PHOSPHATE

REACTIONS (1)
  - Angina unstable [Recovered/Resolved]

NARRATIVE: CASE EVENT DATE: 201710
